FAERS Safety Report 5771801-2 (Version None)
Quarter: 2008Q2

REPORT INFORMATION
  Report Type: 
  Country: None (occurrence: None)
  Receive Date: 20080528
  Receipt Date: 20080512
  Transmission Date: 20081010
  Serious: Yes (Other)
  Sender: FDA-Public Use
  Company Number: M-08-504

PATIENT
  Age: 10 Year
  Sex: Male

DRUGS (1)
  1. FACTOR IX COMPLEX [Suspect]
     Indication: FACTOR VIII DEFICIENCY

REACTIONS (1)
  - FACTOR IX INHIBITION [None]
